FAERS Safety Report 12168255 (Version 1)
Quarter: 2016Q1

REPORT INFORMATION
  Report Type: Spontaneous
  Country: US (occurrence: None)
  Receive Date: 20160309
  Receipt Date: 20160309
  Transmission Date: 20160526
  Serious: Yes (Hospitalization)
  Sender: FDA-Public Use
  Company Number: None

PATIENT
  Age: 68 Year
  Sex: Male
  Weight: 77.7 kg

DRUGS (1)
  1. OCTREOTIDE. [Suspect]
     Active Substance: OCTREOTIDE
     Route: 042
     Dates: start: 20160115, end: 20160115

REACTIONS (3)
  - Urticaria [None]
  - Pruritus [None]
  - Hypotension [None]

NARRATIVE: CASE EVENT DATE: 20160115
